FAERS Safety Report 6250738-9 (Version None)
Quarter: 2009Q2

REPORT INFORMATION
  Report Type: 
  Country: None (occurrence: None)
  Receive Date: 20090630
  Receipt Date: 20080818
  Transmission Date: 20091009
  Serious: No
  Sender: FDA-Public Use
  Company Number: US-ABBOTT-08P-163-0471388-00

PATIENT
  Sex: Male
  Weight: 83.536 kg

DRUGS (8)
  1. ZEMPLAR [Suspect]
     Indication: HYPERPARATHYROIDISM
     Route: 048
     Dates: start: 20080529
  2. SODIUM [Concomitant]
     Indication: RENAL DISORDER
     Route: 048
  3. HYDRALAZINE HCL [Concomitant]
     Indication: HYPERTENSION
     Route: 048
  4. DOXAZOSIN MESYLATE [Concomitant]
     Indication: HYPERTENSION
     Route: 048
  5. HYDROCHLORATHIAZIDE [Concomitant]
     Indication: HYPERTENSION
     Route: 048
  6. AMLOPODIPINE [Concomitant]
     Indication: HYPERTENSION
     Route: 048
  7. GLIBENCLAMIDE [Concomitant]
     Indication: DIABETES MELLITUS
     Route: 048
  8. INEGY [Concomitant]
     Indication: DRUG USE FOR UNKNOWN INDICATION
     Route: 048

REACTIONS (1)
  - ARTHRALGIA [None]
